FAERS Safety Report 12931471 (Version 4)
Quarter: 2017Q1

REPORT INFORMATION
  Report Type: Spontaneous
  Country: RO (occurrence: RO)
  Receive Date: 20161110
  Receipt Date: 20170317
  Transmission Date: 20170428
  Serious: Yes (Other)
  Sender: FDA-Public Use
  Company Number: RO-JNJFOC-20161107914

PATIENT
  Age: 3 Decade
  Sex: Male
  Weight: 63 kg

DRUGS (3)
  1. INFLIXIMAB, RECOMBINANT [Suspect]
     Active Substance: INFLIXIMAB
     Indication: CROHN^S DISEASE
     Dosage: SEVENTH INFUSION
     Route: 042
     Dates: start: 20140301
  2. IMURAN [Concomitant]
     Active Substance: AZATHIOPRINE
     Indication: CROHN^S DISEASE
     Route: 048
  3. INFLIXIMAB, RECOMBINANT [Suspect]
     Active Substance: INFLIXIMAB
     Indication: CROHN^S DISEASE
     Route: 042

REACTIONS (5)
  - Large intestinal stenosis [Unknown]
  - Therapeutic product ineffective [Unknown]
  - Pseudopolyp [Unknown]
  - Ileostomy [Unknown]
  - Intestinal ulcer [Unknown]

NARRATIVE: CASE EVENT DATE: 20130130
